FAERS Safety Report 12563067 (Version 3)
Quarter: 2017Q1

REPORT INFORMATION
  Report Type: Spontaneous
  Country: US (occurrence: US)
  Receive Date: 20160715
  Receipt Date: 20170110
  Transmission Date: 20170428
  Serious: Yes (Other)
  Sender: FDA-Public Use
  Company Number: US-PFIZER INC-2016336472

PATIENT
  Age: 77 Year
  Sex: Female
  Weight: 55.33 kg

DRUGS (10)
  1. CALCIUM [Concomitant]
     Active Substance: CALCIUM
  2. ASPIRIN. [Concomitant]
     Active Substance: ASPIRIN
  3. METOPROLOL. [Concomitant]
     Active Substance: METOPROLOL
  4. MIRTAZAPINE. [Concomitant]
     Active Substance: MIRTAZAPINE
  5. FOLIC ACID. [Concomitant]
     Active Substance: FOLIC ACID
  6. VITAMIN D3 [Concomitant]
     Active Substance: CHOLECALCIFEROL
  7. XELJANZ XR [Suspect]
     Active Substance: TOFACITINIB CITRATE
     Indication: RHEUMATOID ARTHRITIS
     Dosage: 11 MG, DAILY
     Route: 048
     Dates: start: 201511
  8. PREDNISONE. [Concomitant]
     Active Substance: PREDNISONE
  9. TRIAMTERENE AND HYDROCHLOROTHIAZIDE [Concomitant]
     Active Substance: HYDROCHLOROTHIAZIDE\TRIAMTERENE
  10. HYDROMORPHONE [Concomitant]
     Active Substance: HYDROMORPHONE

REACTIONS (10)
  - Contusion [Not Recovered/Not Resolved]
  - Drug dose omission [Unknown]
  - Influenza [Unknown]
  - Swelling face [Not Recovered/Not Resolved]
  - Fall [Not Recovered/Not Resolved]
  - Headache [Unknown]
  - Nasopharyngitis [Unknown]
  - Eye swelling [Not Recovered/Not Resolved]
  - Pain [Not Recovered/Not Resolved]
  - Eye contusion [Not Recovered/Not Resolved]

NARRATIVE: CASE EVENT DATE: 20160703
